FAERS Safety Report 4481841-1 (Version None)
Quarter: 2004Q3

REPORT INFORMATION
  Report Type: 
  Country: None (occurrence: None)
  Receive Date: 20040921
  Receipt Date: 20030915
  Transmission Date: 20050211
  Serious: Yes (Other)
  Sender: FDA-Public Use
  Company Number: 163-20785-03030353

PATIENT
  Age: 63 Year
  Sex: Male
  Weight: 102.5129 kg

DRUGS (10)
  1. THALOMID [Suspect]
     Indication: MULTIPLE MYELOMA
     Dosage: SEE IMAGE
     Route: 048
     Dates: start: 20010101, end: 20010101
  2. THALOMID [Suspect]
     Indication: MULTIPLE MYELOMA
     Dosage: SEE IMAGE
     Route: 048
     Dates: start: 20011218, end: 20020101
  3. THALOMID [Suspect]
     Indication: MULTIPLE MYELOMA
     Dosage: SEE IMAGE
     Route: 048
     Dates: start: 20021220, end: 20030201
  4. AREDIA [Suspect]
     Indication: MULTIPLE MYELOMA
     Dosage: 90 MG, MONTHLY, INTRAVENOUS
     Route: 042
     Dates: start: 19950101
  5. DECADRON [Suspect]
     Indication: MULTIPLE MYELOMA
     Dosage: 20-40 MG, WEEKLU, ORAL
     Route: 048
     Dates: start: 20020118
  6. SENOKOT-S ( SENOKOT-S) (TABLETS) [Concomitant]
  7. ZANTAC [Concomitant]
  8. BACTRIM DS (BACTRIM) (TABLETS) [Concomitant]
  9. BABY ASPIRIN (ACETYLASALICYCIC ACID) [Concomitant]
  10. PLAVIX (CLOPIDODREL SULFATE) [Concomitant]

REACTIONS (20)
  - ABDOMINAL DISTENSION [None]
  - ANAEMIA [None]
  - CEREBRAL INFARCTION [None]
  - CHEST WALL PAIN [None]
  - CONSTIPATION [None]
  - COUGH [None]
  - DISEASE PROGRESSION [None]
  - DYSPNOEA [None]
  - FATIGUE [None]
  - MUSCLE CRAMP [None]
  - MUSCLE FATIGUE [None]
  - MYALGIA [None]
  - NERVOUSNESS [None]
  - NEUROPATHY PERIPHERAL [None]
  - OEDEMA PERIPHERAL [None]
  - PAIN [None]
  - UPPER RESPIRATORY TRACT INFECTION [None]
  - VISUAL FIELD DEFECT [None]
  - VITREOUS FLOATERS [None]
  - WHITE BLOOD CELL COUNT DECREASED [None]
